FAERS Safety Report 25752784 (Version 1)
Quarter: 2025Q3

REPORT INFORMATION
  Report Type: Report from Study
  Country: IN (occurrence: IN)
  Receive Date: 20250902
  Receipt Date: 20250902
  Transmission Date: 20251021
  Serious: Yes (Hospitalization, Other)
  Sender: DAIICHI
  Company Number: IN-AstraZeneca-CH-00937023A

PATIENT
  Sex: Female
  Weight: 72 kg

DRUGS (1)
  1. ENHERTU [Suspect]
     Active Substance: FAM-TRASTUZUMAB DERUXTECAN-NXKI
     Indication: Breast cancer
     Dosage: 400 MG, ONCE EVERY 3 WK
     Route: 041

REACTIONS (2)
  - Lung disorder [Unknown]
  - Pneumonia [Unknown]
